FAERS Safety Report 9256489 (Version 4)
Quarter: 2014Q1

REPORT INFORMATION
  Report Type: Spontaneous
  Country: US (occurrence: US)
  Receive Date: 20130426
  Receipt Date: 20140225
  Transmission Date: 20141002
  Serious: Yes (Hospitalization, Other)
  Sender: FDA-Public Use
  Company Number: US-BIOGENIDEC-2013BI036782

PATIENT
  Age: 35 Year
  Sex: Female

DRUGS (1)
  1. TYSABRI [Suspect]
     Indication: MULTIPLE SCLEROSIS
     Route: 042
     Dates: start: 20071219, end: 20121213

REACTIONS (14)
  - Abscess oral [Recovered/Resolved]
  - Osteomyelitis [Recovered/Resolved with Sequelae]
  - Dental caries [Recovered/Resolved with Sequelae]
  - Bone loss [Recovered/Resolved with Sequelae]
  - Tooth extraction [Recovered/Resolved with Sequelae]
  - Jaw operation [Recovered/Resolved with Sequelae]
  - White blood cell count increased [Recovered/Resolved]
  - Tooth fracture [Recovered/Resolved with Sequelae]
  - Gingival bleeding [Recovered/Resolved]
  - Dysarthria [Not Recovered/Not Resolved]
  - Dental implantation [Recovered/Resolved with Sequelae]
  - Pruritus [Recovered/Resolved]
  - Flushing [Recovered/Resolved]
  - Bruxism [Recovered/Resolved]
